FAERS Safety Report 5597500-8 (Version None)
Quarter: 2008Q1

REPORT INFORMATION
  Report Type: 
  Country: None (occurrence: None)
  Receive Date: 20080121
  Receipt Date: 20080111
  Transmission Date: 20080703
  Serious: Yes (Hospitalization)
  Sender: FDA-Public Use
  Company Number: FR-TEVA-164718ISR

PATIENT
  Sex: Female
  Weight: 20 kg

DRUGS (7)
  1. ETOPOSIDE [Suspect]
     Indication: T-CELL TYPE ACUTE LEUKAEMIA
     Route: 042
     Dates: start: 20071005, end: 20071005
  2. NALBUPHINE [Suspect]
     Indication: ANALGESIA
     Route: 042
     Dates: end: 20071007
  3. METOPIMAZINE [Suspect]
     Indication: VOMITING
     Route: 042
     Dates: start: 20071005, end: 20071009
  4. CHLORPROMAZINE HYDROCHLORIDE [Suspect]
     Indication: VOMITING
     Route: 042
     Dates: start: 20071005, end: 20071007
  5. CEFTAZIDIME [Suspect]
     Indication: PROPHYLAXIS
     Route: 042
     Dates: end: 20071011
  6. PHLOROGLUCINOL [Concomitant]
     Indication: ABDOMINAL PAIN
     Route: 042
  7. FUROSEMIDE [Concomitant]
     Indication: OEDEMA
     Route: 042
     Dates: start: 20071006, end: 20071006

REACTIONS (4)
  - BLOOD CREATINE INCREASED [None]
  - HYPONATRAEMIA [None]
  - RENAL FAILURE ACUTE [None]
  - URINARY RETENTION [None]
